FAERS Safety Report 8835823 (Version 1)
Quarter: 2012Q4

REPORT INFORMATION
  Report Type: 
  Country: JP (occurrence: JP)
  Receive Date: 20121011
  Receipt Date: 20121011
  Transmission Date: 20130627
  Serious: Yes (Other)
  Sender: FDA-Public Use
  Company Number: JP-GLAXOSMITHKLINE-B0835743A

PATIENT
  Age: 18 Year
  Sex: Female

DRUGS (4)
  1. PAXIL [Suspect]
     Indication: DEPRESSION
     Dosage: 25MG Per day
     Route: 048
     Dates: start: 20120711, end: 20120821
  2. PAXIL [Suspect]
     Indication: DEPRESSION
     Dosage: 12.5MG Per day
     Route: 048
     Dates: start: 20120822
  3. CYMBALTA [Concomitant]
     Indication: DEPRESSION
     Route: 048
     Dates: end: 20120710
  4. MYSLEE [Concomitant]
     Dosage: 5MG Per day

REACTIONS (1)
  - Intentional self-injury [Unknown]
